FAERS Safety Report 11286701 (Version 7)
Quarter: 2015Q4

REPORT INFORMATION
  Report Type: Report from Study
  Country: US (occurrence: US)
  Receive Date: 20150721
  Receipt Date: 20151221
  Transmission Date: 20160304
  Serious: No
  Sender: FDA-Public Use
  Company Number: PHEH2015US013966

PATIENT
  Age: 56 Year
  Sex: Female

DRUGS (5)
  1. ADVIL FLU + BODY ACHE [Concomitant]
     Indication: PRODUCT USED FOR UNKNOWN INDICATION
     Dosage: UNK
     Route: 065
  2. EXTAVIA [Suspect]
     Active Substance: INTERFERON BETA-1B
     Dosage: 0.75 ML, QOD (WEEK 5-6: 0.1875 MG)
     Route: 058
  3. EXTAVIA [Suspect]
     Active Substance: INTERFERON BETA-1B
     Dosage: 1 ML, QOD (WEEK 7+: 0.25 MG)
     Route: 058
  4. EXTAVIA [Suspect]
     Active Substance: INTERFERON BETA-1B
     Indication: MULTIPLE SCLEROSIS
     Dosage: 0.25 ML, QOD (WEEK 1-2: 0.0625 MG)
     Route: 058
     Dates: start: 20150714
  5. EXTAVIA [Suspect]
     Active Substance: INTERFERON BETA-1B
     Dosage: 0.5 ML, QOD (WEEK 3-4: 0.125 MG)
     Route: 058

REACTIONS (8)
  - Contusion [Unknown]
  - Pruritus [Recovered/Resolved]
  - Influenza like illness [Unknown]
  - Injection site injury [Recovering/Resolving]
  - Injection site haemorrhage [Unknown]
  - Pain [Recovering/Resolving]
  - Injection site discolouration [Unknown]
  - Fatigue [Recovering/Resolving]

NARRATIVE: CASE EVENT DATE: 20150714
